FAERS Safety Report 8312323 (Version 10)
Quarter: 2013Q1

REPORT INFORMATION
  Report Type: Spontaneous
  Country: JP (occurrence: JP)
  Receive Date: 20111227
  Receipt Date: 20130211
  Transmission Date: 20140127
  Serious: Yes (Death, Other)
  Sender: FDA-Public Use
  Company Number: PHHY2011JP103837

PATIENT
  Age: 74 None
  Sex: Female
  Weight: 76 kg

DRUGS (10)
  1. ZOMETA [Suspect]
     Indication: METASTASES TO BONE
     Dosage: 4 MG (PER ADMINISTRATION), DAILY
     Route: 041
     Dates: start: 200605, end: 200805
  2. AREDIA [Suspect]
     Indication: METASTASES TO BONE
     Dosage: 90 MG (PER ADMINISTRATION) DAILY
     Route: 041
     Dates: start: 200602, end: 200605
  3. HYSRON [Suspect]
     Indication: BREAST CANCER
     Dosage: 1200 MG, DAILY
     Route: 048
     Dates: start: 20080602, end: 20090727
  4. FARESTON [Suspect]
     Indication: BREAST CANCER
     Dosage: 40 MG, DAILY
     Route: 048
     Dates: start: 20090727, end: 20101122
  5. FEMARA [Concomitant]
     Indication: BREAST CANCER
     Dosage: 2.5 MG, DAILY
     Route: 048
     Dates: start: 20101122, end: 20110425
  6. TASUOMIN [Concomitant]
     Indication: BREAST CANCER
     Dosage: 20 MG, DAILY
     Route: 048
     Dates: start: 20110425, end: 20110913
  7. CAPECITABINE [Concomitant]
  8. PACLITAXEL [Concomitant]
  9. MPA [Concomitant]
  10. MORPHINE [Concomitant]
     Indication: CANCER PAIN
     Dosage: UNK UKN, UNK
     Route: 058
     Dates: start: 201109

REACTIONS (20)
  - Respiratory disorder [Fatal]
  - Breast cancer [Fatal]
  - Malignant neoplasm progression [Fatal]
  - Metastases to chest wall [Fatal]
  - Metastases to bone [Fatal]
  - Pneumonia staphylococcal [Unknown]
  - Pleural effusion [Unknown]
  - Mediastinal shift [Unknown]
  - General physical health deterioration [Unknown]
  - Osteonecrosis of jaw [Not Recovered/Not Resolved]
  - Periodontitis [Unknown]
  - Bone lesion [Unknown]
  - Bone swelling [Unknown]
  - Gingival infection [Unknown]
  - Bone pain [Unknown]
  - Exposed bone in jaw [Unknown]
  - Osteomyelitis [Unknown]
  - Bone fistula [Unknown]
  - Primary sequestrum [Unknown]
  - Gingival inflammation [Unknown]
